FAERS Safety Report 22379304 (Version 1)
Quarter: 2023Q2

REPORT INFORMATION
  Report Type: Spontaneous
  Country: GB (occurrence: GB)
  Receive Date: 20230529
  Receipt Date: 20230529
  Transmission Date: 20230721
  Serious: Yes (Other)
  Sender: FDA-Public Use
  Company Number: GB-MHRA-MED-202305241658423710-PBYRK

PATIENT
  Sex: Female

DRUGS (2)
  1. DRONEDARONE [Suspect]
     Active Substance: DRONEDARONE
     Indication: Atrial fibrillation
     Dosage: 400 MG, BID
     Dates: start: 20230415
  2. APIXABAN [Concomitant]
     Active Substance: APIXABAN
     Indication: Adverse drug reaction
     Dosage: 5 MG, BID
     Dates: start: 20170101

REACTIONS (1)
  - Hypotension [Recovered/Resolved]

NARRATIVE: CASE EVENT DATE: 20230510
